FAERS Safety Report 17808939 (Version 2)
Quarter: 2020Q2

REPORT INFORMATION
  Report Type: Report from Study
  Country: GB (occurrence: GB)
  Receive Date: 20200520
  Receipt Date: 20200626
  Transmission Date: 20200714
  Serious: Yes (Death, Life-Threatening, Hospitalization)
  Sender: FDA-Public Use
  Company Number: GB-BAUSCH-BL-2020-014864

PATIENT
  Age: 51 Year
  Sex: Male
  Weight: 75 kg

DRUGS (8)
  1. RAMIPRIL. [Concomitant]
     Active Substance: RAMIPRIL
     Indication: PRODUCT USED FOR UNKNOWN INDICATION
     Dates: start: 20121215
  2. AMLODIPINE [Concomitant]
     Active Substance: AMLODIPINE BESYLATE
     Indication: PRODUCT USED FOR UNKNOWN INDICATION
     Dates: start: 201408
  3. ORAMORPH [Concomitant]
     Active Substance: MORPHINE SULFATE
     Indication: PRODUCT USED FOR UNKNOWN INDICATION
     Dates: start: 20200426, end: 20200426
  4. PARACETAMOL [Concomitant]
     Active Substance: ACETAMINOPHEN
     Indication: PRODUCT USED FOR UNKNOWN INDICATION
     Dates: start: 20180808
  5. AMOXICILLIN. [Concomitant]
     Active Substance: AMOXICILLIN
     Indication: PRODUCT USED FOR UNKNOWN INDICATION
     Dates: start: 20200426, end: 20200426
  6. THIAMINE HYDROCHLORIDE. [Concomitant]
     Active Substance: THIAMINE HYDROCHLORIDE
     Indication: PRODUCT USED FOR UNKNOWN INDICATION
     Dates: start: 20200426, end: 20200426
  7. KYNTHEUM (BRODALUMAB) [Suspect]
     Active Substance: BRODALUMAB
     Indication: PSORIASIS
     Dosage: WEEK 0, 1, 2 THEN EVERY TWO
     Route: 058
     Dates: start: 20190902, end: 20200427
  8. VITAMIN K [Concomitant]
     Active Substance: PHYTONADIONE
     Indication: PRODUCT USED FOR UNKNOWN INDICATION
     Dates: start: 20200426, end: 20200426

REACTIONS (8)
  - Dyspnoea [Fatal]
  - Cough [Fatal]
  - Chest pain [Fatal]
  - Death [Fatal]
  - Jaundice [Fatal]
  - Ascites [Fatal]
  - Cardiac arrest [Fatal]
  - Multiple organ dysfunction syndrome [Fatal]

NARRATIVE: CASE EVENT DATE: 20200427
